FAERS Safety Report 19972471 (Version 2)
Quarter: 2021Q4

REPORT INFORMATION
  Report Type: Spontaneous
  Country: CN (occurrence: None)
  Receive Date: 20211020
  Receipt Date: 20211230
  Transmission Date: 20220303
  Serious: Yes (Hospitalization, Other)
  Sender: FDA-Public Use
  Company Number: CN-ROCHE-2936793

PATIENT
  Age: 38 Year
  Sex: Female

DRUGS (46)
  1. MABTHERA [Suspect]
     Active Substance: RITUXIMAB
     Indication: Follicular lymphoma
     Route: 065
     Dates: start: 20190419
  2. MABTHERA [Suspect]
     Active Substance: RITUXIMAB
     Indication: Diffuse large B-cell lymphoma
     Dosage: R-DHAP
     Route: 065
  3. MABTHERA [Suspect]
     Active Substance: RITUXIMAB
     Route: 065
     Dates: start: 20190511
  4. MABTHERA [Suspect]
     Active Substance: RITUXIMAB
     Route: 065
     Dates: start: 20190605
  5. MABTHERA [Suspect]
     Active Substance: RITUXIMAB
     Route: 065
     Dates: start: 20190628
  6. MABTHERA [Suspect]
     Active Substance: RITUXIMAB
     Route: 065
  7. VINDESINE [Suspect]
     Active Substance: VINDESINE
     Indication: Follicular lymphoma
     Route: 065
     Dates: start: 20190419
  8. VINDESINE [Suspect]
     Active Substance: VINDESINE
     Indication: Diffuse large B-cell lymphoma
     Dosage: EPOCH
     Route: 065
  9. VINDESINE [Suspect]
     Active Substance: VINDESINE
     Dosage: BEAM FOR PRETREATMENT
     Route: 065
     Dates: start: 20190511
  10. VINDESINE [Suspect]
     Active Substance: VINDESINE
     Route: 065
     Dates: start: 20190605
  11. VINDESINE [Suspect]
     Active Substance: VINDESINE
     Route: 065
     Dates: start: 20190628
  12. VINDESINE [Suspect]
     Active Substance: VINDESINE
     Route: 065
  13. VINDESINE [Suspect]
     Active Substance: VINDESINE
     Route: 065
  14. PIRARUBICIN HYDROCHLORIDE [Suspect]
     Active Substance: PIRARUBICIN HYDROCHLORIDE
     Indication: Follicular lymphoma
     Route: 065
     Dates: start: 20190419
  15. PIRARUBICIN HYDROCHLORIDE [Suspect]
     Active Substance: PIRARUBICIN HYDROCHLORIDE
     Indication: Diffuse large B-cell lymphoma
     Dosage: EPOCH
     Route: 065
  16. PIRARUBICIN HYDROCHLORIDE [Suspect]
     Active Substance: PIRARUBICIN HYDROCHLORIDE
     Route: 065
     Dates: start: 20190511
  17. PIRARUBICIN HYDROCHLORIDE [Suspect]
     Active Substance: PIRARUBICIN HYDROCHLORIDE
     Route: 065
     Dates: start: 20190605
  18. PIRARUBICIN HYDROCHLORIDE [Suspect]
     Active Substance: PIRARUBICIN HYDROCHLORIDE
     Route: 065
     Dates: start: 20190628
  19. PIRARUBICIN HYDROCHLORIDE [Suspect]
     Active Substance: PIRARUBICIN HYDROCHLORIDE
     Route: 065
  20. PIRARUBICIN HYDROCHLORIDE [Suspect]
     Active Substance: PIRARUBICIN HYDROCHLORIDE
     Route: 065
  21. CYCLOPHOSPHAMIDE [Suspect]
     Active Substance: CYCLOPHOSPHAMIDE
     Indication: Follicular lymphoma
     Route: 065
     Dates: start: 20190419
  22. CYCLOPHOSPHAMIDE [Suspect]
     Active Substance: CYCLOPHOSPHAMIDE
     Indication: Diffuse large B-cell lymphoma
     Dosage: EPOCH
     Route: 065
  23. CYCLOPHOSPHAMIDE [Suspect]
     Active Substance: CYCLOPHOSPHAMIDE
     Route: 065
     Dates: start: 20190511
  24. CYCLOPHOSPHAMIDE [Suspect]
     Active Substance: CYCLOPHOSPHAMIDE
     Route: 065
     Dates: start: 20190605
  25. CYCLOPHOSPHAMIDE [Suspect]
     Active Substance: CYCLOPHOSPHAMIDE
     Route: 065
     Dates: start: 20190628
  26. CYCLOPHOSPHAMIDE [Suspect]
     Active Substance: CYCLOPHOSPHAMIDE
     Dosage: EPOCH
     Route: 065
  27. PREDNISONE [Suspect]
     Active Substance: PREDNISONE
     Indication: Follicular lymphoma
     Route: 065
     Dates: start: 20190419
  28. PREDNISONE [Suspect]
     Active Substance: PREDNISONE
     Indication: Diffuse large B-cell lymphoma
     Route: 065
     Dates: start: 20190511
  29. PREDNISONE [Suspect]
     Active Substance: PREDNISONE
     Route: 065
     Dates: start: 20190605
  30. PREDNISONE [Suspect]
     Active Substance: PREDNISONE
     Route: 065
     Dates: start: 20190628
  31. ETOPOSIDE [Suspect]
     Active Substance: ETOPOSIDE
     Indication: Follicular lymphoma
     Route: 065
     Dates: start: 20190419
  32. ETOPOSIDE [Suspect]
     Active Substance: ETOPOSIDE
     Indication: Diffuse large B-cell lymphoma
     Dosage: EPOCH
     Route: 065
  33. ETOPOSIDE [Suspect]
     Active Substance: ETOPOSIDE
     Dosage: BEAM FOR PRETREATMENT
     Route: 065
     Dates: start: 20190511
  34. ETOPOSIDE [Suspect]
     Active Substance: ETOPOSIDE
     Route: 065
     Dates: start: 20190605
  35. ETOPOSIDE [Suspect]
     Active Substance: ETOPOSIDE
     Route: 065
     Dates: start: 20190628
  36. ETOPOSIDE [Suspect]
     Active Substance: ETOPOSIDE
     Route: 065
  37. ETOPOSIDE [Suspect]
     Active Substance: ETOPOSIDE
     Route: 065
  38. CYTARABINE [Suspect]
     Active Substance: CYTARABINE
     Indication: Follicular lymphoma
     Dosage: R-DHAP
     Route: 065
  39. CYTARABINE [Suspect]
     Active Substance: CYTARABINE
     Indication: Diffuse large B-cell lymphoma
     Route: 065
  40. CISPLATIN [Suspect]
     Active Substance: CISPLATIN
     Indication: Follicular lymphoma
     Dosage: R-DHAP
     Route: 065
  41. CISPLATIN [Suspect]
     Active Substance: CISPLATIN
     Indication: Diffuse large B-cell lymphoma
  42. DEXAMETHASONE [Suspect]
     Active Substance: DEXAMETHASONE
     Indication: Follicular lymphoma
     Dosage: R-DHAP
     Route: 065
  43. DEXAMETHASONE [Suspect]
     Active Substance: DEXAMETHASONE
     Indication: Diffuse large B-cell lymphoma
  44. GRANULOCYTE COLONY-STIMULATING FACTOR INJECTION (G-CSF) (UNK INGREDIEN [Concomitant]
  45. CARMUSTINE [Concomitant]
     Active Substance: CARMUSTINE
  46. MELPHALAN [Concomitant]
     Active Substance: MELPHALAN

REACTIONS (11)
  - Abdominal distension [Recovering/Resolving]
  - White blood cell count decreased [Unknown]
  - Neutrophil count decreased [Unknown]
  - Pneumonitis [Recovered/Resolved]
  - Intra-abdominal haemorrhage [Recovering/Resolving]
  - Myelosuppression [Unknown]
  - Dyspnoea [Unknown]
  - Heart rate increased [Unknown]
  - Hypotension [Unknown]
  - Infection [Unknown]
  - Immunoglobulins decreased [Unknown]
